FAERS Safety Report 7145460-0 (Version None)
Quarter: 2010Q4

REPORT INFORMATION
  Report Type: 
  Country: None (occurrence: None)
  Receive Date: 20101208
  Receipt Date: 20101129
  Transmission Date: 20110411
  Serious: Yes (Other)
  Sender: FDA-Public Use
  Company Number: US-PFIZER INC-2010160173

PATIENT
  Sex: Female
  Weight: 55.791 kg

DRUGS (10)
  1. LYRICA [Suspect]
     Indication: NEURALGIA
  2. LYRICA [Suspect]
     Indication: CONVULSION
  3. CELEBREX [Concomitant]
  4. PLAQUENIL [Concomitant]
  5. SEROQUEL [Concomitant]
  6. VITAMIN D [Concomitant]
     Indication: VITAMIN D DEFICIENCY
  7. NORCO [Concomitant]
     Indication: PAIN
  8. VITAMIN B-12 [Concomitant]
  9. ARICEPT [Concomitant]
     Indication: CEREBRAL AUTOSOMAL DOMINANT ARTERIOPATHY WITH SUBCORTICAL INFARCTS AND LEUKOENCEPHALOPATHY
  10. NAMENDA [Concomitant]
     Indication: CEREBRAL AUTOSOMAL DOMINANT ARTERIOPATHY WITH SUBCORTICAL INFARCTS AND LEUKOENCEPHALOPATHY

REACTIONS (8)
  - APHONIA [None]
  - ATTENTION DEFICIT/HYPERACTIVITY DISORDER [None]
  - BODY HEIGHT DECREASED [None]
  - DRUG INEFFECTIVE [None]
  - FATIGUE [None]
  - MUSCULAR WEAKNESS [None]
  - OROPHARYNGEAL PAIN [None]
  - PAINFUL RESPIRATION [None]
